FAERS Safety Report 5633194-0 (Version None)
Quarter: 2008Q1

REPORT INFORMATION
  Report Type: 
  Country: None (occurrence: None)
  Receive Date: 20080215
  Receipt Date: 20080131
  Transmission Date: 20080703
  Serious: Yes (Life-Threatening)
  Sender: FDA-Public Use
  Company Number: E2090-00362-SPO-JP

PATIENT
  Age: 3 Month
  Sex: Male

DRUGS (8)
  1. ZONISAMIDE [Suspect]
     Dosage: 40 MG, ORAL; 60 MG, ORAL; 50 MG, ORAL; 30 MG, ORAL; 15 MG, ORAL
     Route: 048
     Dates: start: 20060402, end: 20060520
  2. ZONISAMIDE [Suspect]
     Dosage: 40 MG, ORAL; 60 MG, ORAL; 50 MG, ORAL; 30 MG, ORAL; 15 MG, ORAL
     Route: 048
     Dates: start: 20060521, end: 20060605
  3. ZONISAMIDE [Suspect]
     Dosage: 40 MG, ORAL; 60 MG, ORAL; 50 MG, ORAL; 30 MG, ORAL; 15 MG, ORAL
     Route: 048
     Dates: start: 20060606, end: 20060704
  4. ZONISAMIDE [Suspect]
     Dosage: 40 MG, ORAL; 60 MG, ORAL; 50 MG, ORAL; 30 MG, ORAL; 15 MG, ORAL
     Route: 048
     Dates: start: 20060705, end: 20060708
  5. ZONISAMIDE [Suspect]
     Dosage: 40 MG, ORAL; 60 MG, ORAL; 50 MG, ORAL; 30 MG, ORAL; 15 MG, ORAL
     Route: 048
     Dates: start: 20060709, end: 20060712
  6. CLOBAZAM (CLOBAZAM) [Concomitant]
  7. POTASSIUM BROMIDE (POTASSIUM BROMIDE) [Concomitant]
  8. VITAMIN B PREPARATIONS (VITAMIN B) [Concomitant]

REACTIONS (3)
  - ANAEMIA [None]
  - APLASIA PURE RED CELL [None]
  - INFECTION [None]
